FAERS Safety Report 25517742 (Version 2)
Quarter: 2025Q3

REPORT INFORMATION
  Report Type: Report from Study
  Country: US (occurrence: US)
  Receive Date: 20250704
  Receipt Date: 20250809
  Transmission Date: 20251021
  Serious: Yes (Hospitalization)
  Sender: ALEXION PHARMACEUTICALS
  Company Number: US-AstraZeneca-CH-00897664A

PATIENT
  Age: 91 Year
  Sex: Male
  Weight: 69 kg

DRUGS (3)
  1. ACALABRUTINIB [Suspect]
     Active Substance: ACALABRUTINIB
     Indication: Chronic lymphocytic leukaemia
  2. ELIQUIS [Concomitant]
     Active Substance: APIXABAN
     Route: 065
  3. GABAPENTIN [Concomitant]
     Active Substance: GABAPENTIN
     Route: 065

REACTIONS (5)
  - Delirium [Recovering/Resolving]
  - Asthenia [Recovering/Resolving]
  - Blood glucose increased [Recovering/Resolving]
  - Oxygen saturation decreased [Recovering/Resolving]
  - Atrial fibrillation [Recovering/Resolving]

NARRATIVE: CASE EVENT DATE: 20250618
